FAERS Safety Report 12362470 (Version 1)
Quarter: 2016Q2

REPORT INFORMATION
  Report Type: Spontaneous
  Country: US (occurrence: US)
  Receive Date: 20160512
  Receipt Date: 20160512
  Transmission Date: 20160815
  Serious: Yes (Death, Other)
  Sender: FDA-Public Use
  Company Number: US-MYLANLABS-2016M1018233

PATIENT

DRUGS (7)
  1. CALCIUM HYDROGEN PHOSPHATE DIHYDRATE [Suspect]
     Active Substance: CALCIUM PHOSPHATE, DIBASIC, DIHYDRATE
     Dosage: UNK
     Route: 065
  2. ATROPINE. [Suspect]
     Active Substance: ATROPINE
     Indication: CARDIAC ARREST
     Dosage: 1 MG, ONCE
     Route: 042
     Dates: start: 20160325, end: 20160325
  3. LIDOCAINE. [Suspect]
     Active Substance: LIDOCAINE
     Indication: CARDIAC ARREST
     Dosage: 1 MG, UNK
     Route: 042
  4. LEVOPHED [Suspect]
     Active Substance: NOREPINEPHRINE BITARTRATE
     Indication: CARDIAC ARREST
     Dosage: TWICE
     Route: 042
     Dates: start: 20160325, end: 20160325
  5. AMIODARONE [Suspect]
     Active Substance: AMIODARONE
     Indication: CARDIAC ARREST
     Dosage: 300 UNK, TWICE
     Route: 042
     Dates: start: 20160325, end: 20160325
  6. VASOPRESSIN. [Suspect]
     Active Substance: VASOPRESSIN
     Dosage: UNK
     Route: 065
  7. EPINEPHRINE. [Suspect]
     Active Substance: EPINEPHRINE
     Dosage: UNK
     Route: 065

REACTIONS (1)
  - Drug ineffective [Fatal]
